FAERS Safety Report 12708263 (Version 2)
Quarter: 2016Q3

REPORT INFORMATION
  Report Type: Spontaneous
  Country: US (occurrence: US)
  Receive Date: 20160901
  Receipt Date: 20160915
  Transmission Date: 20161109
  Serious: No
  Sender: FDA-Public Use
  Company Number: US-GILEAD-2016-0230877

PATIENT
  Age: 44 Year
  Sex: Male
  Weight: 91.16 kg

DRUGS (3)
  1. ALPRAZOLAM. [Concomitant]
     Active Substance: ALPRAZOLAM
     Indication: PAIN
  2. HYDROCODONE [Concomitant]
     Active Substance: HYDROCODONE
     Indication: PAIN
  3. HARVONI [Suspect]
     Active Substance: LEDIPASVIR\SOFOSBUVIR
     Indication: CHRONIC HEPATITIS C
     Dosage: UNK
     Route: 065
     Dates: start: 20160317, end: 20160617

REACTIONS (2)
  - Leukocytosis [Recovered/Resolved]
  - Shift to the left [Unknown]

NARRATIVE: CASE EVENT DATE: 20160617
